FAERS Safety Report 18238554 (Version 7)
Quarter: 2021Q4

REPORT INFORMATION
  Report Type: Spontaneous
  Country: US (occurrence: US)
  Receive Date: 20200907
  Receipt Date: 20211102
  Transmission Date: 20220303
  Serious: No
  Sender: FDA-Public Use
  Company Number: US-PFIZER INC-2020344738

PATIENT
  Age: 67 Year
  Sex: Female

DRUGS (1)
  1. LYRICA [Suspect]
     Active Substance: PREGABALIN
     Dosage: UNK

REACTIONS (5)
  - Electric shock sensation [Unknown]
  - Trigeminal neuralgia [Unknown]
  - Speech disorder [Unknown]
  - Trigeminal nerve disorder [Unknown]
  - Memory impairment [Unknown]
